FAERS Safety Report 8004989-3 (Version None)
Quarter: 2011Q4

REPORT INFORMATION
  Report Type: 
  Country: None (occurrence: None)
  Receive Date: 20111223
  Receipt Date: 20111221
  Transmission Date: 20120403
  Serious: Yes (Life-Threatening, Hospitalization)
  Sender: FDA-Public Use
  Company Number: JP-B.I. PHARMACEUTICALS,INC./RIDGEFIELD-2011-BP-26917NB

PATIENT
  Sex: Female
  Weight: 57 kg

DRUGS (9)
  1. NITOROL R [Concomitant]
     Indication: ANGINA PECTORIS
     Dosage: 20 MG
     Route: 048
     Dates: start: 20070401
  2. PROTECADIN [Concomitant]
     Indication: GASTRITIS
     Dosage: 10 MG
     Route: 048
     Dates: start: 20070401
  3. ETODOLAC [Concomitant]
     Indication: SPINAL OSTEOARTHRITIS
     Dosage: 400 MG
     Route: 048
     Dates: start: 20070401, end: 20111121
  4. CALNATE [Concomitant]
     Indication: HYPERTENSION
     Dosage: 5 MG
     Route: 048
     Dates: start: 20070401
  5. ANPLAG [Concomitant]
     Indication: ARTERIAL OCCLUSIVE DISEASE
     Dosage: 100 MG
     Route: 048
     Dates: start: 20070401, end: 20111121
  6. CRESTOR [Concomitant]
     Indication: HYPERLIPIDAEMIA
     Dosage: 1.25 MG
     Route: 048
     Dates: start: 20070401
  7. PRADAXA [Suspect]
     Indication: ATRIAL FIBRILLATION
     Dosage: 220 MG
     Route: 048
     Dates: start: 20110613, end: 20111121
  8. AMISALIN [Concomitant]
     Indication: VENTRICULAR EXTRASYSTOLES
     Dosage: 250 MG
     Route: 048
     Dates: start: 20070401
  9. PLETAL [Suspect]
     Route: 048

REACTIONS (4)
  - LOWER GASTROINTESTINAL HAEMORRHAGE [None]
  - CHEST DISCOMFORT [None]
  - ANAEMIA [None]
  - GASTROENTERITIS [None]
